FAERS Safety Report 21006295 (Version 2)
Quarter: 2022Q3

REPORT INFORMATION
  Report Type: Report from Study
  Country: US (occurrence: US)
  Receive Date: 20220624
  Receipt Date: 20220706
  Transmission Date: 20221027
  Serious: Yes (Death, Other)
  Sender: FDA-Public Use
  Company Number: US-GILEAD-2022-0587126

PATIENT
  Age: 74 Year
  Sex: Female
  Weight: 117.46 kg

DRUGS (16)
  1. AMBRISENTAN [Suspect]
     Active Substance: AMBRISENTAN
     Indication: Pulmonary arterial hypertension
     Dosage: 10 MG
     Route: 065
  2. AMITRIPTYLINE [Concomitant]
     Active Substance: AMITRIPTYLINE
  3. ATENOLOL [Concomitant]
     Active Substance: ATENOLOL
  4. CITALOPRAM [Concomitant]
     Active Substance: CITALOPRAM HYDROBROMIDE
  5. CYCLOBENZAPRINE [Concomitant]
     Active Substance: CYCLOBENZAPRINE
  6. EMGALITY [Concomitant]
     Active Substance: GALCANEZUMAB-GNLM
  7. MELOXICAM [Concomitant]
     Active Substance: MELOXICAM
  8. METOLAZONE [Concomitant]
     Active Substance: METOLAZONE
  9. NAPROXEN [Concomitant]
     Active Substance: NAPROXEN
  10. OXYBUTYNIN [Concomitant]
     Active Substance: OXYBUTYNIN
  11. PRADAXA [Concomitant]
     Active Substance: DABIGATRAN ETEXILATE MESYLATE
  12. PRIMIDONE [Concomitant]
     Active Substance: PRIMIDONE
  13. SILDENAFIL [Concomitant]
     Active Substance: SILDENAFIL
     Dosage: 20 MG
  14. SOTALOL [Concomitant]
     Active Substance: SOTALOL
     Dosage: 80 MG
  15. TOPIRAMATE [Concomitant]
     Active Substance: TOPIRAMATE
     Dosage: 25 MG
  16. TORSEMIDE [Concomitant]
     Active Substance: TORSEMIDE
     Dosage: 10 MG

REACTIONS (1)
  - Death [Fatal]

NARRATIVE: CASE EVENT DATE: 20220611
